FAERS Safety Report 9973322 (Version 1)
Quarter: 2014Q1

REPORT INFORMATION
  Report Type: Spontaneous
  Country: US (occurrence: US)
  Receive Date: 20140306
  Receipt Date: 20140306
  Transmission Date: 20141002
  Serious: No
  Sender: FDA-Public Use
  Company Number: US-ABBVIE-13P-163-1154816-00

PATIENT
  Sex: Female
  Weight: 65.83 kg

DRUGS (4)
  1. HUMIRA [Suspect]
     Indication: CROHN^S DISEASE
     Dates: start: 20120517
  2. LIALDA [Concomitant]
     Indication: CROHN^S DISEASE
  3. ZOFRAN [Concomitant]
     Indication: NAUSEA
  4. ENTOCORT [Concomitant]
     Indication: CROHN^S DISEASE

REACTIONS (2)
  - Pustular psoriasis [Not Recovered/Not Resolved]
  - Dermatitis [Unknown]
